FAERS Safety Report 6664716-9 (Version None)
Quarter: 2010Q1

REPORT INFORMATION
  Report Type: 
  Country: None (occurrence: None)
  Receive Date: 20100330
  Receipt Date: 20100107
  Transmission Date: 20100710
  Serious: Yes (Other)
  Sender: FDA-Public Use
  Company Number: 6057187

PATIENT

DRUGS (5)
  1. LEVOTHYROXINE SODIUM [Suspect]
     Indication: BASEDOW'S DISEASE
     Route: 064
  2. PROPYLTHIOURACIL [Suspect]
     Indication: DRUG USE FOR UNKNOWN INDICATION
     Dosage: (3 IN 1 D)
  3. LUGOL CAP [Concomitant]
  4. DIGITALIS TAB [Concomitant]
  5. FUROSEMIDE [Concomitant]

REACTIONS (6)
  - ECHOCARDIOGRAM ABNORMAL [None]
  - FEEDING DISORDER NEONATAL [None]
  - HYPERTENSION [None]
  - HYPERTHYROIDISM [None]
  - MATERNAL DRUGS AFFECTING FOETUS [None]
  - NEONATAL TACHYCARDIA [None]
